FAERS Safety Report 11371958 (Version 1)
Quarter: 2015Q3

REPORT INFORMATION
  Report Type: Spontaneous
  Country: US (occurrence: US)
  Receive Date: 20150812
  Receipt Date: 20150812
  Transmission Date: 20151125
  Serious: No
  Sender: FDA-Public Use
  Company Number: GXBR2015US001685

PATIENT
  Sex: Female

DRUGS (4)
  1. ZINC OXIDE. [Suspect]
     Active Substance: ZINC OXIDE
     Indication: ARTHROPOD BITE
  2. ZINC OXIDE. [Suspect]
     Active Substance: ZINC OXIDE
     Indication: PRURITUS
  3. ZINC OXIDE. [Suspect]
     Active Substance: ZINC OXIDE
     Indication: DRY SKIN
     Dosage: UNK DF, UNK
     Route: 048
  4. ZINC OXIDE. [Suspect]
     Active Substance: ZINC OXIDE
     Indication: PROPHYLAXIS

REACTIONS (1)
  - Off label use [Not Recovered/Not Resolved]
